FAERS Safety Report 12709042 (Version 1)
Quarter: 2016Q3

REPORT INFORMATION
  Report Type: Spontaneous
  Country: US (occurrence: US)
  Receive Date: 20160901
  Receipt Date: 20160901
  Transmission Date: 20161109
  Serious: No
  Sender: FDA-Public Use
  Company Number: US-JAZZ-2016-US-008419

PATIENT
  Age: 40 Year
  Sex: Female
  Weight: 154.2 kg

DRUGS (8)
  1. CLARITIN [Concomitant]
     Active Substance: LORATADINE
  2. LASIX [Concomitant]
     Active Substance: FUROSEMIDE
  3. NUVIGIL [Concomitant]
     Active Substance: ARMODAFINIL
     Indication: NARCOLEPSY
     Dosage: UNK
  4. TOPROL XL [Concomitant]
     Active Substance: METOPROLOL SUCCINATE
  5. XYREM [Suspect]
     Active Substance: SODIUM OXYBATE
     Indication: NARCOLEPSY
     Dosage: 3.5 G, BID
     Route: 048
     Dates: start: 20160429
  6. ADVIL [Concomitant]
     Active Substance: IBUPROFEN
  7. ALLEGRA ALLERGY [Concomitant]
     Active Substance: FEXOFENADINE HYDROCHLORIDE
  8. TRAZODONE [Concomitant]
     Active Substance: TRAZODONE HYDROCHLORIDE

REACTIONS (2)
  - Blood pressure increased [Unknown]
  - Sinus headache [Recovered/Resolved]

NARRATIVE: CASE EVENT DATE: 20160502
